FAERS Safety Report 14347625 (Version 2)
Quarter: 2018Q1

REPORT INFORMATION
  Report Type: Spontaneous
  Country: US (occurrence: US)
  Receive Date: 20180103
  Receipt Date: 20180221
  Transmission Date: 20180509
  Serious: No
  Sender: FDA-Public Use
  Company Number: US-009507513-1712USA009357

PATIENT
  Age: 59 Year
  Sex: Male

DRUGS (3)
  1. CYTOTOXIC T LYMPHOCYTES [Concomitant]
     Indication: NEUROENDOCRINE CARCINOMA OF THE SKIN
  2. IPILIMUMAB [Concomitant]
     Active Substance: IPILIMUMAB
     Indication: NEUROENDOCRINE CARCINOMA OF THE SKIN
  3. KEYTRUDA [Suspect]
     Active Substance: PEMBROLIZUMAB
     Indication: NEUROENDOCRINE CARCINOMA OF THE SKIN

REACTIONS (1)
  - Product use in unapproved indication [Unknown]
